FAERS Safety Report 12478312 (Version 1)
Quarter: 2016Q2

REPORT INFORMATION
  Report Type: Spontaneous
  Country: DE (occurrence: DE)
  Receive Date: 20160617
  Receipt Date: 20160617
  Transmission Date: 20160815
  Serious: Yes (Other)
  Sender: FDA-Public Use
  Company Number: DE-GE HEALTHCARE MEDICAL DIAGNOSTICS-OMPQ-PR-1606S-0980

PATIENT
  Age: 52 Year
  Sex: Female

DRUGS (2)
  1. ACCUPAQUE [Suspect]
     Active Substance: IOHEXOL
     Indication: BASILAR ARTERY THROMBOSIS
     Route: 042
     Dates: start: 20160608, end: 20160608
  2. ACCUPAQUE [Suspect]
     Active Substance: IOHEXOL
     Indication: DIAGNOSTIC PROCEDURE

REACTIONS (2)
  - Loss of consciousness [Recovered/Resolved]
  - Dyspnoea [Recovered/Resolved]

NARRATIVE: CASE EVENT DATE: 20160608
